FAERS Safety Report 9587985 (Version 1)
Quarter: 2013Q4

REPORT INFORMATION
  Report Type: Spontaneous
  Country: JP (occurrence: JP)
  Receive Date: 20131003
  Receipt Date: 20131003
  Transmission Date: 20140711
  Serious: Yes (Other)
  Sender: FDA-Public Use
  Company Number: JP-GILEAD-2013-0084705

PATIENT
  Sex: Male

DRUGS (3)
  1. HEPSERA [Suspect]
     Indication: CHRONIC HEPATITIS B
     Dosage: UNK
     Route: 048
     Dates: start: 2005
  2. ZEFFIX [Suspect]
     Indication: CHRONIC HEPATITIS B
     Dosage: UNK
     Route: 048
  3. JANUVIA [Concomitant]
     Indication: DIABETES MELLITUS
     Route: 048
     Dates: start: 2011

REACTIONS (10)
  - IgA nephropathy [Unknown]
  - Glomerular vascular disorder [Unknown]
  - Diabetes mellitus [Unknown]
  - Proteinuria [Unknown]
  - Renal atrophy [Unknown]
  - Blood urine present [Unknown]
  - Fanconi syndrome acquired [Unknown]
  - Renal tubular disorder [Unknown]
  - Drug resistance [Unknown]
  - Renal impairment [Unknown]
